FAERS Safety Report 11893179 (Version 1)
Quarter: 2016Q1

REPORT INFORMATION
  Report Type: Spontaneous
  Country: US (occurrence: US)
  Receive Date: 20160106
  Receipt Date: 20160106
  Transmission Date: 20160526
  Serious: No
  Sender: FDA-Public Use
  Company Number: US-ASTRAZENECA-2015SF27513

PATIENT
  Age: 23149 Day
  Sex: Female
  Weight: 113.4 kg

DRUGS (12)
  1. OXYBUTYNIN [Concomitant]
     Active Substance: OXYBUTYNIN
     Indication: CYSTITIS INTERSTITIAL
     Route: 048
     Dates: start: 201511
  2. BUPROPION. [Concomitant]
     Active Substance: BUPROPION
     Indication: CYSTITIS INTERSTITIAL
     Route: 048
     Dates: start: 2014
  3. IMODIUM [Concomitant]
     Active Substance: LOPERAMIDE HYDROCHLORIDE
  4. MOVANTIK [Suspect]
     Active Substance: NALOXEGOL OXALATE
     Indication: CONSTIPATION
     Route: 048
     Dates: end: 20151208
  5. CARISOPRODOL. [Concomitant]
     Active Substance: CARISOPRODOL
     Indication: FIBROMYALGIA
     Route: 048
     Dates: start: 2006
  6. SENOKOT [Concomitant]
     Active Substance: SENNOSIDES
     Indication: ABDOMINAL DISCOMFORT
  7. DULCOLAX NOS [Concomitant]
     Active Substance: BISACODYL OR DOCUSATE SODIUM
     Indication: ABDOMINAL DISCOMFORT
  8. ASPIRIN. [Concomitant]
     Active Substance: ASPIRIN
     Route: 050
     Dates: start: 2006
  9. METHADONE [Concomitant]
     Active Substance: METHADONE HYDROCHLORIDE
     Indication: INFLAMMATION
     Route: 048
  10. MOVANTIK [Suspect]
     Active Substance: NALOXEGOL OXALATE
     Indication: CONSTIPATION
     Route: 048
     Dates: start: 20151019, end: 20151122
  11. IBUPROFEN. [Concomitant]
     Active Substance: IBUPROFEN
     Indication: INFLAMMATION
     Route: 048
     Dates: start: 1995
  12. AMITRIPTYLINE [Concomitant]
     Active Substance: AMITRIPTYLINE
     Indication: CYSTITIS INTERSTITIAL
     Route: 048
     Dates: start: 2014

REACTIONS (5)
  - Drug ineffective [Unknown]
  - Cystitis interstitial [Unknown]
  - Gastrointestinal pain [Unknown]
  - Abdominal pain upper [Unknown]
  - Off label use [Recovered/Resolved]

NARRATIVE: CASE EVENT DATE: 20151019
